FAERS Safety Report 24550650 (Version 2)
Quarter: 2024Q4

REPORT INFORMATION
  Report Type: Spontaneous
  Country: BR (occurrence: BR)
  Receive Date: 20241025
  Receipt Date: 20241106
  Transmission Date: 20250114
  Serious: Yes (Other)
  Sender: NOVARTIS
  Company Number: BR-002147023-NVSC2024BR101745

PATIENT
  Age: 84 Year
  Sex: Female
  Weight: 74 kg

DRUGS (8)
  1. TABRECTA [Suspect]
     Active Substance: CAPMATINIB
     Indication: Lung neoplasm malignant
     Dosage: 2 DOSAGE FORM, QD (200 MG, COATE TABET  CONTAINS  BLISTER ALUMINUM  PLACTIC  PVC/PC TFE  TRANSPAREN
     Route: 048
     Dates: start: 202307
  2. TABRECTA [Suspect]
     Active Substance: CAPMATINIB
     Dosage: 200 MG, BID
     Route: 048
     Dates: start: 202307
  3. TABRECTA [Suspect]
     Active Substance: CAPMATINIB
     Dosage: 150 MG, BID
     Route: 048
     Dates: start: 20241014
  4. LUVOX [Concomitant]
     Active Substance: FLUVOXAMINE MALEATE
     Indication: Depression
     Dosage: 1 DOSAGE FORM, QD
     Route: 065
  5. ELIQUIS [Concomitant]
     Active Substance: APIXABAN
     Indication: Cardiac disorder
     Dosage: 2 DOSAGE FORM, QD
     Route: 048
  6. ELIQUIS [Concomitant]
     Active Substance: APIXABAN
     Indication: Anticoagulant therapy
  7. GLIFAGE [Concomitant]
     Active Substance: METFORMIN HYDROCHLORIDE
     Indication: Diabetes mellitus
     Dosage: 1 DOSAGE FORM, QD
     Route: 048
  8. LOSARTAN [Concomitant]
     Active Substance: LOSARTAN
     Indication: Blood pressure measurement
     Dosage: 1 DOSAGE FORM, QD
     Route: 048

REACTIONS (9)
  - Swelling [Not Recovered/Not Resolved]
  - Swollen tongue [Not Recovered/Not Resolved]
  - Weight increased [Unknown]
  - Swelling [Recovered/Resolved]
  - Fatigue [Not Recovered/Not Resolved]
  - Dengue fever [Recovered/Resolved]
  - Platelet count decreased [Recovered/Resolved]
  - Dry mouth [Recovered/Resolved]
  - Myalgia [Recovered/Resolved]

NARRATIVE: CASE EVENT DATE: 20231201
